FAERS Safety Report 7320587-9 (Version None)
Quarter: 2011Q1

REPORT INFORMATION
  Report Type: 
  Country: None (occurrence: None)
  Receive Date: 20110228
  Receipt Date: 20110218
  Transmission Date: 20110831
  Serious: Yes (Hospitalization)
  Sender: FDA-Public Use
  Company Number: FR-ROCHE-679709

PATIENT
  Sex: Male
  Weight: 45.5 kg

DRUGS (18)
  1. ROSUVASTATIN [Concomitant]
     Dosage: DRUG: ROSUVASTATINE
     Dates: start: 20090907
  2. RACECADOTRIL [Concomitant]
     Dates: start: 20050511, end: 20100105
  3. METHOXY POLYETHYLENE GLYCOL-EPOETIN BETA [Suspect]
     Dosage: LAST DOSE PRIOR TO SAE: 20 NOVEMBER 2009
     Route: 042
     Dates: start: 20090826
  4. CALCIUM CARBONATE [Concomitant]
     Dosage: TDD: 1/DAY
     Dates: start: 20081221
  5. ENOXAPARIN SODIUM [Concomitant]
     Dates: start: 19960609
  6. SACCHAROSE [Concomitant]
     Dosage: DRUG: SACCHAROSE FERRIQUE
     Dates: start: 20081006
  7. AMIODARONE HCL [Concomitant]
     Dosage: TDD: 1/D
     Dates: start: 20080513
  8. ALPRAZOLAM [Concomitant]
     Dosage: TDD: 1/D
     Dates: start: 20020925, end: 20100105
  9. WARFARIN [Concomitant]
     Dosage: DRUG: WARFARINE
     Dates: start: 20080507, end: 20100105
  10. PARACETAMOL [Concomitant]
     Dates: start: 20070727
  11. ZOLPIDEM [Concomitant]
     Dosage: FREQUENCY: PM
     Dates: start: 20100119
  12. BISOPROLOL FUMARATE [Concomitant]
     Dates: start: 20080513, end: 20100105
  13. CLONAZEPAM [Concomitant]
     Dates: start: 20091218, end: 20100105
  14. POLYSTYRENE SULPHONATE [Concomitant]
     Dosage: DRUG: POLYSTYRENE SULFONATE SODIUM
     Dates: start: 20060104, end: 20091218
  15. FLUNARIZINE [Concomitant]
     Dosage: TDD: 2 CP
     Dates: start: 20070104, end: 20100105
  16. SEVELAMER [Concomitant]
     Dosage: TDD: 2/D
     Dates: start: 20071123
  17. OMEPRAZOLE [Concomitant]
     Dates: start: 20081221
  18. TRAMADOL CHLORHYDRATE [Concomitant]
     Dosage: DOSE: 100; FREQUENCY: PRN
     Dates: start: 20080609, end: 20100105

REACTIONS (4)
  - PNEUMONIA [None]
  - CHOLECYSTITIS ACUTE [None]
  - SEPTIC SHOCK [None]
  - MALNUTRITION [None]
